FAERS Safety Report 11177067 (Version 1)
Quarter: 2015Q2

REPORT INFORMATION
  Report Type: Spontaneous
  Country: CN (occurrence: None)
  Receive Date: 20150608
  Receipt Date: 20150608
  Transmission Date: 20150821
  Serious: Yes (Hospitalization)
  Sender: FDA-Public Use
  Company Number: CN-ACS-000112

PATIENT
  Age: 59 Year
  Sex: Male

DRUGS (2)
  1. CEFTAZIDIME. [Suspect]
     Active Substance: CEFTAZIDIME
     Indication: INFECTION PROPHYLAXIS
     Dosage: 1 X 2 G EVERY 1 DAY(S) INTRAVENOUS
     Route: 042
  2. CEFTAZIDIME. [Suspect]
     Active Substance: CEFTAZIDIME
     Indication: INFECTION
     Dosage: 1 X 2 G EVERY 12 HOUR(S) INTRAVENOUS
     Route: 042

REACTIONS (5)
  - Prothrombin time prolonged [None]
  - Nervous system disorder [None]
  - Infection [None]
  - Activated partial thromboplastin time prolonged [None]
  - Coagulopathy [None]
